FAERS Safety Report 25014836 (Version 2)
Quarter: 2025Q2

REPORT INFORMATION
  Report Type: Report from Study
  Country: FR (occurrence: FR)
  Receive Date: 20250226
  Receipt Date: 20250404
  Transmission Date: 20250716
  Serious: Yes (Death, Hospitalization)
  Sender: PFIZER
  Company Number: FR-PFIZER INC-PV202500014161

PATIENT
  Age: 61 Year
  Weight: 60.3 kg

DRUGS (13)
  1. LORLATINIB [Suspect]
     Active Substance: LORLATINIB
     Indication: Lung neoplasm malignant
     Dosage: 100 MG/DAY ONCE DAILY CONTINUOUSLY
     Route: 048
     Dates: start: 20250122, end: 20250127
  2. LORLATINIB [Suspect]
     Active Substance: LORLATINIB
     Dosage: 100 MG, 1X/DAY
     Route: 048
     Dates: start: 20250210, end: 20250213
  3. ESOMEPRAZOLE [Concomitant]
     Active Substance: ESOMEPRAZOLE
     Indication: Gastrooesophageal reflux disease
     Route: 048
  4. POLYETHYLENE GLYCOLS [Concomitant]
     Active Substance: POLYETHYLENE GLYCOLS
     Indication: Constipation
     Route: 048
  5. POTASSIUM [Concomitant]
     Active Substance: POTASSIUM
     Indication: Prophylaxis
     Dosage: 1200 MG, 2X/DAY: IN THE MORNING AND IN THE EVENING
     Route: 048
  6. NICOPATCH [Concomitant]
     Active Substance: NICOTINE
     Indication: Smoking cessation therapy
     Dosage: 21 MG, DAILY
     Route: 062
  7. OXAZEPAM [Concomitant]
     Active Substance: OXAZEPAM
     Indication: Anxiety
     Route: 048
  8. ACETAMINOPHEN [Concomitant]
     Active Substance: ACETAMINOPHEN
     Indication: Pleuritic pain
     Route: 048
  9. OXYCODONE [Concomitant]
     Active Substance: OXYCODONE
     Indication: Pleuritic pain
     Dosage: 10 MG, EVERY 4 HRS
  10. PREGABALIN [Concomitant]
     Active Substance: PREGABALIN
     Indication: Anxiety
     Dosage: 75 MG, 2X/DAY, MONING AND EVENING
     Route: 048
  11. FENTANYL [Concomitant]
     Active Substance: FENTANYL
     Indication: Pleuritic pain
     Route: 062
  12. HUMALOG [Concomitant]
     Active Substance: INSULIN LISPRO
     Indication: Diabetes mellitus
     Dosage: 6 IU, 2X/DAY, MORNING AND EVENING
     Route: 058
  13. INSULIN GLARGINE [Concomitant]
     Active Substance: INSULIN GLARGINE
     Indication: Diabetes mellitus
     Dosage: 10 IU, 1X/DAY, IN THE EVENING
     Route: 058

REACTIONS (4)
  - Cognitive disorder [Fatal]
  - Disorientation [Fatal]
  - Lung neoplasm malignant [Fatal]
  - Malignant neoplasm progression [Fatal]

NARRATIVE: CASE EVENT DATE: 20250127
